FAERS Safety Report 6312604-X (Version None)
Quarter: 2009Q3

REPORT INFORMATION
  Report Type: 
  Country: None (occurrence: None)
  Receive Date: 20090813
  Receipt Date: 20090630
  Transmission Date: 20100115
  Serious: No
  Sender: FDA-Public Use
  Company Number: 8049791

PATIENT
  Age: 31 Year
  Sex: Female

DRUGS (7)
  1. KEPPRA [Suspect]
     Indication: EPILEPSY
     Dosage: 1000 MG
     Dates: start: 20080901
  2. FOLIC ACID [Concomitant]
  3. VITAMIN K [Concomitant]
  4. VITAMIN TAB [Concomitant]
  5. SLOW-FE [Concomitant]
  6. CALCIUM [Concomitant]
  7. INSULIN TABLETS [Concomitant]

REACTIONS (2)
  - DRUG EXPOSURE DURING PREGNANCY [None]
  - GESTATIONAL DIABETES [None]
